FAERS Safety Report 20779140 (Version 1)
Quarter: 2022Q2

REPORT INFORMATION
  Report Type: Report from Study
  Country: US (occurrence: US)
  Receive Date: 20220503
  Receipt Date: 20220503
  Transmission Date: 20220720
  Serious: Yes (Death, Other)
  Sender: FDA-Public Use
  Company Number: US-GILEAD-2022-0580018

PATIENT

DRUGS (1)
  1. AXICABTAGENE CILOLEUCEL [Suspect]
     Active Substance: AXICABTAGENE CILOLEUCEL
     Indication: B-cell lymphoma recurrent
     Dosage: UNK
     Route: 042

REACTIONS (4)
  - Ischaemic stroke [Fatal]
  - Ventricular tachycardia [Fatal]
  - Immune effector cell-associated neurotoxicity syndrome [Fatal]
  - Neutropenic colitis [Fatal]
